FAERS Safety Report 6957650-8 (Version None)
Quarter: 2010Q3

REPORT INFORMATION
  Report Type: 
  Country: None (occurrence: None)
  Receive Date: 20100831
  Receipt Date: 20100825
  Transmission Date: 20110219
  Serious: Yes (Other)
  Sender: FDA-Public Use
  Company Number: IN-ROXANE LABORATORIES, INC.-2010-RO-01135RO

PATIENT
  Age: 39 Year
  Sex: Female

DRUGS (6)
  1. SERTRALINE HYDROCHLORIDE [Suspect]
     Indication: PANIC DISORDER WITH AGORAPHOBIA
     Dosage: 25 MG
  2. SERTRALINE HYDROCHLORIDE [Suspect]
     Dosage: 50 MG
  3. ALPRAZOLAM [Suspect]
     Indication: PANIC DISORDER WITHOUT AGORAPHOBIA
  4. PROPRANOLOL [Suspect]
     Indication: PANIC DISORDER WITHOUT AGORAPHOBIA
  5. CLONAZEPAM [Suspect]
     Indication: PANIC DISORDER WITHOUT AGORAPHOBIA
     Dosage: 1.5 MG
  6. PAROXETINE HCL [Suspect]
     Indication: PANIC DISORDER WITHOUT AGORAPHOBIA
     Dosage: 12.5 MG

REACTIONS (3)
  - CROSS SENSITIVITY REACTION [None]
  - DRUG ERUPTION [None]
  - DRUG INEFFECTIVE [None]
